FAERS Safety Report 12920416 (Version 1)
Quarter: 2016Q4

REPORT INFORMATION
  Report Type: Spontaneous
  Country: US (occurrence: US)
  Receive Date: 20161104
  Receipt Date: 20161104
  Transmission Date: 20170207
  Serious: No
  Sender: FDA-Public Use
  Company Number: None

PATIENT
  Age: 74 Year
  Sex: Female

DRUGS (1)
  1. IMATINIB  MES TAB 400MG [Suspect]
     Active Substance: IMATINIB
     Indication: BENIGN SOFT TISSUE NEOPLASM

REACTIONS (1)
  - Nausea [None]

NARRATIVE: CASE EVENT DATE: 20161102
